FAERS Safety Report 9511838 (Version 2)
Quarter: 2013Q4

REPORT INFORMATION
  Report Type: Spontaneous
  Country: GB (occurrence: None)
  Receive Date: 20130906
  Receipt Date: 20131008
  Transmission Date: 20140711
  Serious: Yes (Life-Threatening, Hospitalization)
  Sender: FDA-Public Use
  Company Number: FK201304065

PATIENT
  Age: 63 Year
  Sex: Male

DRUGS (3)
  1. PROPOFOL [Suspect]
     Indication: INDUCTION OF ANAESTHESIA
     Dosage: 200 MG, 1 IN TOTAL, INTRAVENOUS
     Route: 042
     Dates: start: 20130729, end: 20130729
  2. BENDROFLUMETHIAZIDE (BENDROFLUMETHIAZIDE) (BENDROFLUMETHIAZIDE) [Concomitant]
  3. RAMIPRIL (RAMIPRIL) (RAMIPRIL) [Concomitant]

REACTIONS (2)
  - Ventricular fibrillation [None]
  - Cardiac arrest [None]
